FAERS Safety Report 6037184-8 (Version None)
Quarter: 2009Q1

REPORT INFORMATION
  Report Type: 
  Country: None (occurrence: None)
  Receive Date: 20090114
  Receipt Date: 20090106
  Transmission Date: 20090719
  Serious: Yes (Other)
  Sender: FDA-Public Use
  Company Number: JP-MERCK-0901USA00402

PATIENT
  Age: 54 Year
  Sex: Male

DRUGS (2)
  1. DECADRON [Suspect]
     Indication: MULTIPLE MYELOMA
     Route: 048
     Dates: start: 20071101, end: 20071101
  2. BORTEZOMIB [Suspect]
     Indication: MULTIPLE MYELOMA
     Route: 048
     Dates: start: 20071101, end: 20071101

REACTIONS (1)
  - THROMBOTIC MICROANGIOPATHY [None]
